FAERS Safety Report 14802483 (Version 1)
Quarter: 2018Q2

REPORT INFORMATION
  Report Type: Spontaneous
  Country: FR (occurrence: FR)
  Receive Date: 20180424
  Receipt Date: 20180424
  Transmission Date: 20180711
  Serious: Yes (Other)
  Sender: FDA-Public Use
  Company Number: FR-MYLANLABS-2018M1025026

PATIENT
  Age: 30 Year
  Sex: Female

DRUGS (9)
  1. SUFENTANIL [Concomitant]
     Active Substance: SUFENTANIL
     Indication: CAESAREAN SECTION
     Route: 037
  2. MORPHINE [Suspect]
     Active Substance: MORPHINE
     Indication: CAESAREAN SECTION
     Dosage: 50 ?G, UNK
     Route: 037
  3. TRAMADOL. [Concomitant]
     Active Substance: TRAMADOL
     Indication: ANALGESIC THERAPY
     Route: 042
  4. EPHEDRINE. [Concomitant]
     Active Substance: EPHEDRINE
     Indication: BLOOD PRESSURE SYSTOLIC
     Route: 042
  5. BUPIVACAINE. [Concomitant]
     Active Substance: BUPIVACAINE
     Indication: CAESAREAN SECTION
     Dosage: 10 MG OF 0.5% HYPERBARIC BUPIVACAINE
     Route: 037
  6. OCYTOCIN [Concomitant]
     Indication: PRODUCT USED FOR UNKNOWN INDICATION
  7. PARACETAMOL [Concomitant]
     Active Substance: ACETAMINOPHEN
     Indication: ANALGESIC THERAPY
     Route: 042
  8. AMPICILLINE                        /00000501/ [Concomitant]
     Indication: PRODUCT USED FOR UNKNOWN INDICATION
  9. NEOSYNEPHRINE [Concomitant]
     Active Substance: PHENYLEPHRINE HYDROCHLORIDE
     Indication: BLOOD PRESSURE SYSTOLIC
     Route: 042

REACTIONS (8)
  - Hypothermia [Recovered/Resolved]
  - Somnolence [Recovered/Resolved]
  - Nausea [Recovered/Resolved]
  - Oxygen saturation decreased [Recovered/Resolved]
  - Feeling hot [Recovered/Resolved]
  - Maternal exposure during delivery [Recovered/Resolved]
  - Chills [Recovered/Resolved]
  - Vomiting [Recovered/Resolved]
